FAERS Safety Report 15450916 (Version 1)
Quarter: 2018Q3

REPORT INFORMATION
  Report Type: Spontaneous
  Country: US (occurrence: US)
  Receive Date: 20180926
  Receipt Date: 20180926
  Transmission Date: 20181010
  Serious: No
  Sender: FDA-Public Use
  Company Number: None

PATIENT
  Age: 76 Year
  Sex: Female

DRUGS (1)
  1. ENBREL [Suspect]
     Active Substance: ETANERCEPT
     Indication: RHEUMATOID ARTHRITIS
     Dosage: AS DIRECTED ?MAY CAUSE DIZZINESS
     Route: 058
     Dates: start: 201305

REACTIONS (4)
  - Upper limb fracture [None]
  - Fall [None]
  - Dizziness [None]
  - Pelvic fracture [None]
